FAERS Safety Report 7485676-7 (Version None)
Quarter: 2011Q2

REPORT INFORMATION
  Report Type: 
  Country: None (occurrence: None)
  Receive Date: 20110517
  Receipt Date: 20100625
  Transmission Date: 20111010
  Serious: No
  Sender: FDA-Public Use
  Company Number: US-PFIZER INC-2010080451

PATIENT
  Sex: Female

DRUGS (1)
  1. NICOTROL [Suspect]
     Dosage: UNK

REACTIONS (2)
  - INTENTIONAL DRUG MISUSE [None]
  - PRODUCT TASTE ABNORMAL [None]
